FAERS Safety Report 6017524-6 (Version None)
Quarter: 2008Q4

REPORT INFORMATION
  Report Type: 
  Country: None (occurrence: None)
  Receive Date: 20081223
  Receipt Date: 20081215
  Transmission Date: 20090506
  Serious: Yes (Death)
  Sender: FDA-Public Use
  Company Number: US-PFIZER INC-2008153365

PATIENT
  Age: 39 Year
  Sex: Female

DRUGS (6)
  1. HYDROXYZINE PAMOATE [Suspect]
  2. METHADONE HYDROCHLORIDE [Suspect]
  3. CYCLOBENZAPRINE [Suspect]
  4. BUSPIRONE [Suspect]
  5. QUETIAPINE [Suspect]
  6. ETHANOL [Suspect]

REACTIONS (1)
  - COMPLETED SUICIDE [None]
